FAERS Safety Report 11138793 (Version 1)
Quarter: 2015Q2

REPORT INFORMATION
  Report Type: Spontaneous
  Country: US (occurrence: US)
  Receive Date: 20150527
  Receipt Date: 20150527
  Transmission Date: 20150821
  Serious: No
  Sender: FDA-Public Use
  Company Number: US-NOVEN PHARMACEUTICALS, INC.-US2015000177

PATIENT
  Age: 48 Year
  Sex: Female

DRUGS (3)
  1. MINIVELLE [Suspect]
     Active Substance: ESTRADIOL
     Indication: HYSTERECTOMY
     Dosage: 0.0375 MG, UNK
     Route: 062
     Dates: start: 20150409, end: 20150413
  2. CODEINE [Concomitant]
     Active Substance: CODEINE
  3. PROCTOSERT HC [Concomitant]

REACTIONS (4)
  - Application site reaction [Recovering/Resolving]
  - Therapy cessation [Unknown]
  - Heart rate increased [Unknown]
  - Vein disorder [Recovering/Resolving]

NARRATIVE: CASE EVENT DATE: 20150410
